FAERS Safety Report 11823810 (Version 3)
Quarter: 2016Q1

REPORT INFORMATION
  Report Type: Report from Study
  Country: US (occurrence: US)
  Receive Date: 20151210
  Receipt Date: 20160309
  Transmission Date: 20160525
  Serious: Yes (Other)
  Sender: FDA-Public Use
  Company Number: US-FRI-1000081062

PATIENT
  Age: 66 Year
  Sex: Female
  Weight: 89.3 kg

DRUGS (10)
  1. METRONIDAZOLE. [Concomitant]
     Active Substance: METRONIDAZOLE
     Indication: FOLLICULITIS
     Route: 061
     Dates: start: 20150427
  2. F2695 (OPEN LABEL) [Suspect]
     Active Substance: LEVOMILNACIPRAN
     Dosage: 40 MG
     Dates: start: 20150514, end: 20150527
  3. F2695 (OPEN LABEL) [Suspect]
     Active Substance: LEVOMILNACIPRAN
     Dosage: 80 MG
     Dates: start: 20150528, end: 20150529
  4. CROTAMITON [Concomitant]
     Active Substance: CROTAMITON
     Indication: FOLLICULITIS
     Route: 061
     Dates: start: 2012
  5. PRAVASTATIN [Concomitant]
     Active Substance: PRAVASTATIN\PRAVASTATIN SODIUM
     Indication: HYPERLIPIDAEMIA
     Dosage: 40 MG
     Route: 048
     Dates: start: 2005
  6. ESTRADIOL. [Concomitant]
     Active Substance: ESTRADIOL
     Indication: MENOPAUSE
     Route: 062
     Dates: start: 20150510
  7. F2695 (OPEN LABEL) [Suspect]
     Active Substance: LEVOMILNACIPRAN
     Indication: DEPRESSION
     Dosage: 20 MG
     Dates: start: 20150512, end: 20150513
  8. METFORMIN [Concomitant]
     Active Substance: METFORMIN HYDROCHLORIDE
     Indication: TYPE 2 DIABETES MELLITUS
     Dosage: 850 MG
     Route: 048
     Dates: start: 201204
  9. LISINOPRIL. [Concomitant]
     Active Substance: LISINOPRIL
     Indication: HYPERTENSION
     Dosage: 10 MG
     Route: 048
     Dates: start: 200009
  10. F2695 [Suspect]
     Active Substance: LEVOMILNACIPRAN
     Indication: DEPRESSION
     Dosage: 80 MG
     Route: 048
     Dates: start: 20150512

REACTIONS (1)
  - Transient ischaemic attack [Recovered/Resolved with Sequelae]

NARRATIVE: CASE EVENT DATE: 20151112
